FAERS Safety Report 7108007-0 (Version None)
Quarter: 2010Q4

REPORT INFORMATION
  Report Type: 
  Country: None (occurrence: None)
  Receive Date: 20101117
  Receipt Date: 20101103
  Transmission Date: 20110411
  Serious: No
  Sender: FDA-Public Use
  Company Number: US-B.I. PHARMACEUTICALS,INC./RIDGEFIELD-2010-BP-12319BP

PATIENT
  Age: 80 Year
  Sex: Male

DRUGS (7)
  1. CATAPRES-TTS-1 [Suspect]
     Indication: HYPERTENSION
     Dosage: 0.3 MG
     Route: 061
     Dates: start: 20101001
  2. CLONIDINE [Suspect]
     Indication: HYPERTENSION
  3. LISINOPRIL [Suspect]
     Indication: HYPERTENSION
  4. VALTURNA [Suspect]
     Indication: HYPERTENSION
  5. DIAZIDE [Suspect]
     Indication: HYPERTENSION
  6. LEVOTHYROXINE [Concomitant]
     Indication: HYPOTHYROIDISM
  7. SIMVASTATIN [Concomitant]
     Indication: BLOOD CHOLESTEROL INCREASED

REACTIONS (1)
  - DRUG INEFFECTIVE [None]
